FAERS Safety Report 11969499 (Version 1)
Quarter: 2016Q1

REPORT INFORMATION
  Report Type: Spontaneous
  Country: US (occurrence: US)
  Receive Date: 20160128
  Receipt Date: 20160128
  Transmission Date: 20160526
  Serious: Yes (Life-Threatening, Hospitalization, Other)
  Sender: FDA-Public Use
  Company Number: US-WATSON-2016-01220

PATIENT
  Age: 14 Month
  Sex: Female

DRUGS (1)
  1. CLONIDINE. [Suspect]
     Active Substance: CLONIDINE
     Indication: ACCIDENTAL EXPOSURE TO PRODUCT BY CHILD
     Dosage: 1 0.2 MG CLONIDINE TABLET
     Route: 048

REACTIONS (4)
  - Apnoea [Recovered/Resolved]
  - Accidental exposure to product by child [Recovered/Resolved]
  - Lethargy [Recovered/Resolved]
  - Coma [Recovered/Resolved]
